FAERS Safety Report 8317682-4 (Version None)
Quarter: 2012Q2

REPORT INFORMATION
  Report Type: 
  Country: None (occurrence: None)
  Receive Date: 20120427
  Receipt Date: 20120418
  Transmission Date: 20120825
  Serious: Yes (Hospitalization)
  Sender: FDA-Public Use
  Company Number: US-BRISTOL-MYERS SQUIBB COMPANY-13154901

PATIENT
  Age: 63 Year
  Sex: Male
  Weight: 78 kg

DRUGS (11)
  1. CETUXIMAB [Suspect]
     Indication: HEAD AND NECK CANCER
     Dosage: 2690MG,LAST ADMINISTERED DOSE:10-OCT-2005
     Route: 042
     Dates: start: 20051010, end: 20051010
  2. CISPLATIN [Suspect]
     Indication: HEAD AND NECK CANCER
     Dosage: DOSE:232 MG LAST ADMINISTERED DOSE:10-OCT-2005
     Route: 042
     Dates: start: 20051010, end: 20051010
  3. DOCUSATE [Concomitant]
  4. LIPITOR [Concomitant]
  5. OXAZEPAM [Concomitant]
  6. SYNTHROID [Concomitant]
  7. CALCITRIOL [Concomitant]
  8. RANITIDINE [Concomitant]
  9. METOPROLOL TARTRATE [Concomitant]
  10. CALCIUM [Concomitant]
  11. VASOTEC [Concomitant]

REACTIONS (11)
  - NEUTROPENIA [None]
  - HYPOMAGNESAEMIA [None]
  - HYPOCALCAEMIA [None]
  - LYMPHOPENIA [None]
  - DEHYDRATION [None]
  - WEIGHT DECREASED [None]
  - LEUKOPENIA [None]
  - BLOOD CALCIUM DECREASED [None]
  - DERMATITIS ACNEIFORM [None]
  - HAEMOGLOBIN DECREASED [None]
  - BLOOD MAGNESIUM DECREASED [None]
